FAERS Safety Report 16342231 (Version 5)
Quarter: 2024Q4

REPORT INFORMATION
  Report Type: Other
  Country: CA (occurrence: CA)
  Receive Date: 20190522
  Receipt Date: 20241011
  Transmission Date: 20250115
  Serious: Yes (Death, Other)
  Sender: APOTEX
  Company Number: CA-APOTEX-2019AP014302

PATIENT
  Age: 74 Year
  Sex: Female
  Weight: 50 kg

DRUGS (24)
  1. CYCLOSPORINE [Suspect]
     Active Substance: CYCLOSPORINE
     Indication: Haemoglobin decreased
     Dosage: UNK
     Route: 065
  2. AMLODIPINE [Suspect]
     Active Substance: AMLODIPINE BESYLATE
     Indication: Blood pressure increased
     Dosage: UNK
     Route: 065
  3. PREDNISONE [Suspect]
     Active Substance: PREDNISONE
     Indication: Product used for unknown indication
     Dosage: UNK
     Route: 065
  4. RITUXAN [Suspect]
     Active Substance: RITUXIMAB
     Indication: Neuromyelitis optica spectrum disorder
     Dosage: 1000 MG, 1 EVERY 6 MONTHS
     Route: 042
  5. RITUXAN [Suspect]
     Active Substance: RITUXIMAB
     Indication: Multiple sclerosis
     Dosage: 1000 MILLIGRAM, Q.O.WK.
     Route: 042
  6. RITUXAN [Suspect]
     Active Substance: RITUXIMAB
     Dosage: 500 MILLIGRAM, 1 EVERY 3 MONTHS
     Route: 042
  7. RITUXAN [Suspect]
     Active Substance: RITUXIMAB
     Dosage: 500 MILLIGRAM
     Route: 042
  8. RITUXAN [Suspect]
     Active Substance: RITUXIMAB
     Dosage: UNK
     Route: 065
  9. RITUXAN [Suspect]
     Active Substance: RITUXIMAB
     Dosage: 500 MILLIGRAM, 1 EVERY 3 MONTHS
     Route: 042
  10. RITUXAN [Suspect]
     Active Substance: RITUXIMAB
     Dosage: 1000 MILLIGRAM, CYCLICAL
     Route: 042
  11. RITUXAN [Suspect]
     Active Substance: RITUXIMAB
     Dosage: 500 MILLIGRAM, 1 EVERY 3 MONTHS
     Route: 042
  12. SYNTHROID [Concomitant]
     Active Substance: LEVOTHYROXINE SODIUM
     Indication: Product used for unknown indication
     Dosage: UNK
     Route: 065
  13. TYLENOL [Concomitant]
     Active Substance: ACETAMINOPHEN
     Indication: Product used for unknown indication
     Dosage: UNK
     Route: 065
  14. TYLENOL [Concomitant]
     Active Substance: ACETAMINOPHEN
     Dosage: 650 MILLIGRAM
     Route: 048
  15. RANITIDINE [Concomitant]
     Active Substance: RANITIDINE
     Indication: Product used for unknown indication
     Dosage: 150 MILLIGRAM
     Route: 065
  16. CALCIUM [Concomitant]
     Active Substance: CALCIUM
     Indication: Product used for unknown indication
     Dosage: UNK
     Route: 065
  17. DIPHENHYDRAMINE [Concomitant]
     Active Substance: DIPHENHYDRAMINE
     Indication: Premedication
     Dosage: 50 MILLIGRAM
     Route: 048
  18. MAGNESIUM [Concomitant]
     Active Substance: MAGNESIUM
     Indication: Product used for unknown indication
     Dosage: UNK
     Route: 065
  19. METHYLPREDNISOLONE [Concomitant]
     Active Substance: METHYLPREDNISOLONE
     Indication: Product used for unknown indication
     Dosage: 100 MILLIGRAM
     Route: 042
  20. RABEPRAZOLE [Concomitant]
     Active Substance: RABEPRAZOLE
     Indication: Product used for unknown indication
     Dosage: UNK
     Route: 065
  21. ACETAMINOPHEN [Concomitant]
     Active Substance: ACETAMINOPHEN
     Indication: Product used for unknown indication
     Dosage: 650 MILLIGRAM
     Route: 048
  22. BILBERRY [VACCINIUM MYRTILLUS] [Concomitant]
     Indication: Product used for unknown indication
     Dosage: UNK
     Route: 065
  23. DOCONEXENT\ICOSAPENT [Concomitant]
     Active Substance: DOCONEXENT\ICOSAPENT
     Indication: Product used for unknown indication
     Dosage: UNK
     Route: 065
  24. TRIAMCINOLONE ACETONIDE [Concomitant]
     Active Substance: TRIAMCINOLONE ACETONIDE
     Indication: Product used for unknown indication
     Dosage: UNK
     Route: 065

REACTIONS (37)
  - Dyschromatopsia [Fatal]
  - Metamorphopsia [Fatal]
  - Nerve compression [Fatal]
  - Migraine with aura [Fatal]
  - Migraine [Fatal]
  - Vision blurred [Fatal]
  - Blood iron increased [Fatal]
  - Joint swelling [Fatal]
  - Balance disorder [Fatal]
  - Optic neuritis [Fatal]
  - Pain [Fatal]
  - Aphthous ulcer [Fatal]
  - Blood pressure systolic abnormal [Fatal]
  - Heart rate increased [Fatal]
  - Eye pain [Fatal]
  - Rash [Fatal]
  - Pigmentation disorder [Fatal]
  - Constipation [Fatal]
  - Chest pain [Fatal]
  - Pruritus [Fatal]
  - Fatigue [Fatal]
  - Headache [Fatal]
  - Haemoglobin decreased [Fatal]
  - Blood pressure increased [Fatal]
  - Blood pressure systolic increased [Fatal]
  - Weight increased [Fatal]
  - Abdominal distension [Fatal]
  - Abdominal pain upper [Fatal]
  - Blood pressure fluctuation [Fatal]
  - Eastern Cooperative Oncology Group performance status abnormal [Fatal]
  - Haemorrhoids [Fatal]
  - Off label use [Fatal]
  - Polymers allergy [Fatal]
  - Skin mass [Fatal]
  - Vulvovaginal pruritus [Fatal]
  - Allergy to chemicals [Fatal]
  - Weight decreased [Fatal]
